FAERS Safety Report 24201376 (Version 2)
Quarter: 2024Q3

REPORT INFORMATION
  Report Type: Spontaneous
  Country: US (occurrence: US)
  Receive Date: 20240812
  Receipt Date: 20240812
  Transmission Date: 20241017
  Serious: Yes (Death)
  Sender: PFIZER
  Company Number: US-PFIZER INC-PV202400103005

PATIENT
  Age: 54 Year
  Sex: Female

DRUGS (7)
  1. MORPHINE SULFATE [Suspect]
     Active Substance: MORPHINE SULFATE
     Indication: Pain
     Dosage: 1 MG/HR
     Route: 041
     Dates: start: 20240222, end: 20240222
  2. MORPHINE SULFATE [Suspect]
     Active Substance: MORPHINE SULFATE
     Dosage: 8 MG/HR
     Route: 041
     Dates: start: 20240222
  3. MORPHINE SULFATE [Suspect]
     Active Substance: MORPHINE SULFATE
     Dosage: 2 MG, EVERY 15 MINS
     Route: 040
     Dates: start: 20240222, end: 20240223
  4. MIDAZOLAM [Suspect]
     Active Substance: MIDAZOLAM
     Indication: Restlessness
     Dosage: 10 MG
     Dates: start: 20240222
  5. MIDAZOLAM [Suspect]
     Active Substance: MIDAZOLAM
     Indication: Anxiety
     Dosage: 1 MG, Q30MINS
     Route: 040
     Dates: start: 20240222
  6. ATROPINE [Concomitant]
     Active Substance: ATROPINE
     Indication: Oral discharge
     Dosage: 2 DROPS OPHTHALMIC SOLUTION Q4H
     Dates: start: 20240222
  7. KEPPRA [Concomitant]
     Active Substance: LEVETIRACETAM
     Indication: Seizure
     Dosage: 250 MG, BD
     Route: 040
     Dates: start: 20240222

REACTIONS (3)
  - Intentional overdose [Fatal]
  - Respiratory depression [Fatal]
  - Asphyxia [Fatal]

NARRATIVE: CASE EVENT DATE: 20240222
